FAERS Safety Report 22001017 (Version 1)
Quarter: 2023Q1

REPORT INFORMATION
  Report Type: Spontaneous
  Country: US (occurrence: None)
  Receive Date: 20230215
  Receipt Date: 20230215
  Transmission Date: 20230418
  Serious: No
  Sender: FDA-Public Use
  Company Number: None

PATIENT
  Sex: Male
  Weight: 101.15 kg

DRUGS (14)
  1. CAPECITABINE [Suspect]
     Active Substance: CAPECITABINE
     Indication: Appendix cancer
     Dosage: FREQUENCY : DAILY;?
     Route: 048
     Dates: start: 202302
  2. CAPECITABINE [Suspect]
     Active Substance: CAPECITABINE
     Indication: Appendix cancer
     Dosage: FREQUENCY : DAILY;?
     Route: 048
  3. ASCORBIC ACID [Concomitant]
  4. ASPIRIN [Concomitant]
  5. COLCHICINE [Concomitant]
     Active Substance: COLCHICINE
  6. FAMOTIDINE [Concomitant]
  7. GABAPENTIN [Concomitant]
     Active Substance: GABAPENTIN
  8. LYRICA [Concomitant]
  9. MAGNESIUM OXIDE [Concomitant]
     Active Substance: MAGNESIUM OXIDE
  10. METHOCARBAMOL [Concomitant]
  11. NIFEDIPINE [Concomitant]
     Active Substance: NIFEDIPINE
  12. NOVOLOG [Concomitant]
  13. TAMSULOSIN [Concomitant]
  14. ULTRAM [Concomitant]
     Active Substance: TRAMADOL HYDROCHLORIDE

REACTIONS (1)
  - Palmar-plantar erythrodysaesthesia syndrome [None]
